FAERS Safety Report 6767241-X (Version None)
Quarter: 2010Q2

REPORT INFORMATION
  Report Type: 
  Country: None (occurrence: None)
  Receive Date: 20100614
  Receipt Date: 20100604
  Transmission Date: 20101027
  Serious: Yes (Hospitalization)
  Sender: FDA-Public Use
  Company Number: KR-JNJFOC-20100308873

PATIENT
  Sex: Female
  Weight: 52 kg

DRUGS (14)
  1. GOLIMUMAB [Suspect]
     Indication: RHEUMATOID ARTHRITIS
     Route: 058
  2. GOLIMUMAB [Suspect]
     Route: 058
  3. PLACEBO [Suspect]
     Indication: RHEUMATOID ARTHRITIS
     Route: 058
  4. METHOTREXATE [Suspect]
     Indication: RHEUMATOID ARTHRITIS
     Route: 048
  5. METHOTREXATE [Concomitant]
     Route: 048
  6. FOLATE [Concomitant]
     Route: 048
  7. FENOPROFEN CALCIUM [Concomitant]
     Route: 048
  8. ACETAMINOPHEN [Concomitant]
     Route: 048
  9. TRAMADOL [Concomitant]
     Route: 048
  10. PREDNISONE [Concomitant]
     Route: 048
  11. CACO3 [Concomitant]
     Route: 048
  12. MISOPROSTOL [Concomitant]
     Route: 048
  13. AMLODIPINE [Concomitant]
  14. HYDROCHLOROTHIAZIDE [Concomitant]
     Route: 048

REACTIONS (2)
  - IRON DEFICIENCY ANAEMIA [None]
  - PNEUMONIA PRIMARY ATYPICAL [None]
